FAERS Safety Report 4478660-9 (Version None)
Quarter: 2004Q4

REPORT INFORMATION
  Report Type: 
  Country: None (occurrence: None)
  Receive Date: 20040923
  Receipt Date: 20040527
  Transmission Date: 20050328
  Serious: Yes (Other)
  Sender: FDA-Public Use
  Company Number: USA040568718

PATIENT
  Age: 72 Year
  Sex: Female

DRUGS (3)
  1. EVISTA [Suspect]
     Indication: OSTEOPOROSIS
     Dosage: 60 MG/L DAY
     Dates: start: 19980101, end: 20040504
  2. FORTEO [Suspect]
     Indication: OSTEOPOROSIS
     Dosage: 20 UG/L DAY
     Dates: start: 20040505
  3. MIACALCIN [Concomitant]

REACTIONS (5)
  - BONE DENSITY DECREASED [None]
  - HOT FLUSH [None]
  - INJECTION SITE HAEMORRHAGE [None]
  - PELVIC FRACTURE [None]
  - WEIGHT DECREASED [None]
